FAERS Safety Report 6820707-6 (Version None)
Quarter: 2010Q3

REPORT INFORMATION
  Report Type: 
  Country: None (occurrence: None)
  Receive Date: 20100707
  Receipt Date: 20100623
  Transmission Date: 20110219
  Serious: Yes (Hospitalization)
  Sender: FDA-Public Use
  Company Number: US-ELI_LILLY_AND_COMPANY-US201006006796

PATIENT
  Age: 27 Year
  Sex: Female

DRUGS (2)
  1. CYMBALTA [Suspect]
     Dosage: 30 MG, UNK
  2. MORPHINE [Interacting]
     Dosage: UNK, UNK
     Route: 037
     Dates: start: 20100623

REACTIONS (3)
  - HYSTERECTOMY [None]
  - POTENTIATING DRUG INTERACTION [None]
  - SEDATION [None]
